FAERS Safety Report 7451868-6 (Version None)
Quarter: 2011Q2

REPORT INFORMATION
  Report Type: 
  Country: None (occurrence: None)
  Receive Date: 20110502
  Receipt Date: 20110421
  Transmission Date: 20111010
  Serious: Yes (Other)
  Sender: FDA-Public Use
  Company Number: US-ASTRAZENECA-2011SE18183

PATIENT
  Age: 56 Year
  Sex: Male
  Weight: 99.8 kg

DRUGS (14)
  1. SEROQUEL [Suspect]
     Route: 048
     Dates: start: 20010101
  2. LISINOPRIL [Concomitant]
     Indication: HYPERTENSION
     Route: 048
     Dates: start: 20110101, end: 20110101
  3. ASPIRIN [Concomitant]
     Indication: CARDIAC DISORDER
     Route: 048
     Dates: start: 20110101, end: 20110101
  4. VALPROEX [Concomitant]
     Route: 048
  5. SEROQUEL [Suspect]
     Indication: DEPRESSION
     Route: 048
     Dates: start: 20080101
  6. PROPRANOLOL HYDROCHLORIDE [Concomitant]
     Indication: CARDIAC DISORDER
     Route: 048
     Dates: start: 20110101, end: 20110101
  7. TRAZODONE HCL [Concomitant]
     Indication: DEPRESSION
     Route: 048
     Dates: start: 20110101, end: 20110101
  8. CLONAZEPAM [Concomitant]
     Indication: DEPRESSION
     Route: 048
     Dates: start: 20110101, end: 20110101
  9. SEROQUEL [Suspect]
     Indication: BIPOLAR DISORDER
     Route: 048
     Dates: start: 20080101
  10. VITAMIN B3 [Concomitant]
     Route: 048
  11. DEPAKOTE [Concomitant]
     Route: 048
  12. BUPROPION XL [Concomitant]
     Indication: DEPRESSION
     Route: 048
     Dates: start: 20110101, end: 20110101
  13. SEROQUEL [Suspect]
     Route: 048
     Dates: start: 20010101
  14. ASPIRIN [Concomitant]
     Indication: CEREBROVASCULAR ACCIDENT PROPHYLAXIS
     Route: 048
     Dates: start: 20110101, end: 20110101

REACTIONS (5)
  - LOWER LIMB FRACTURE [None]
  - FALL [None]
  - JOINT INJURY [None]
  - THROMBOSIS [None]
  - WEIGHT INCREASED [None]
